FAERS Safety Report 24268969 (Version 1)
Quarter: 2024Q3

REPORT INFORMATION
  Report Type: Spontaneous
  Country: US (occurrence: US)
  Receive Date: 20240830
  Receipt Date: 20240830
  Transmission Date: 20241016
  Serious: No
  Sender: RECKITT BENCKISER
  Company Number: US-PROD-AS2-212756134-RB-084432-2024

PATIENT
  Age: 65 Year
  Sex: Female

DRUGS (1)
  1. MUCINEX MAXIMUM STRENGTH [Suspect]
     Active Substance: GUAIFENESIN
     Indication: Productive cough
     Dosage: TOTAL 8 TABLETS
     Route: 048
     Dates: end: 20240126

REACTIONS (2)
  - Drug ineffective [Recovered/Resolved]
  - Incorrect product administration duration [Unknown]
